FAERS Safety Report 23981751 (Version 2)
Quarter: 2024Q3

REPORT INFORMATION
  Report Type: Spontaneous
  Country: IE (occurrence: IE)
  Receive Date: 20240617
  Receipt Date: 20240819
  Transmission Date: 20241016
  Serious: Yes (Other)
  Sender: NOVARTIS
  Company Number: None

PATIENT
  Age: 54 Year
  Sex: Female

DRUGS (7)
  1. ZOMETA [Suspect]
     Active Substance: ZOLEDRONIC ACID
     Indication: Breast cancer
     Dosage: 4 MG (EVERY 6 MONTH)
     Route: 065
     Dates: end: 20240112
  2. ALENDRONIC ACID [Concomitant]
     Active Substance: ALENDRONIC ACID
     Indication: Product used for unknown indication
     Dosage: UNK
     Route: 065
  3. TERIPARATIDE [Concomitant]
     Active Substance: TERIPARATIDE
     Indication: Product used for unknown indication
     Dosage: 100 UG
     Route: 065
     Dates: start: 20230706, end: 20240612
  4. ESOMEPRAZOLE [Concomitant]
     Active Substance: ESOMEPRAZOLE
     Indication: Product used for unknown indication
     Dosage: 40 MG, Q24H (1MONTH)
     Route: 065
  5. TAMOXIFEN CITRATE [Concomitant]
     Active Substance: TAMOXIFEN CITRATE
     Indication: Product used for unknown indication
     Dosage: 20 MG
     Route: 065
     Dates: start: 20240628
  6. LEVOTHYROXINE [Concomitant]
     Active Substance: LEVOTHYROXINE\LEVOTHYROXINE SODIUM
     Indication: Product used for unknown indication
     Dosage: 100 UG, Q24H
     Route: 065
     Dates: start: 20230320
  7. LEVOTHYROXINE [Concomitant]
     Active Substance: LEVOTHYROXINE\LEVOTHYROXINE SODIUM
     Dosage: 125 UG, Q24H
     Route: 065
     Dates: start: 20230706

REACTIONS (16)
  - Fall [Unknown]
  - Multiple fractures [Recovered/Resolved]
  - Wrist fracture [Recovering/Resolving]
  - Femur fracture [Recovered/Resolved]
  - Jaw disorder [Recovering/Resolving]
  - Gait inability [Recovering/Resolving]
  - Pain [Recovering/Resolving]
  - Myalgia [Recovering/Resolving]
  - Arthritis [Recovering/Resolving]
  - Pathological fracture [Recovered/Resolved]
  - Hypotension [Recovering/Resolving]
  - Foot fracture [Recovering/Resolving]
  - Pulmonary embolism [Recovering/Resolving]
  - Hip fracture [Recovering/Resolving]
  - Femur fracture [Recovered/Resolved]
  - Radius fracture [Recovering/Resolving]

NARRATIVE: CASE EVENT DATE: 20220701
